FAERS Safety Report 10832409 (Version 1)
Quarter: 2015Q1

REPORT INFORMATION
  Report Type: Report from Study
  Country: US (occurrence: US)
  Receive Date: 20150219
  Receipt Date: 20150219
  Transmission Date: 20150721
  Serious: Yes (Hospitalization, Other)
  Sender: FDA-Public Use
  Company Number: US-ABBVIE-14P-163-1197458-00

PATIENT
  Sex: Male

DRUGS (5)
  1. HUMIRA [Suspect]
     Active Substance: ADALIMUMAB
     Indication: RHEUMATOID ARTHRITIS
     Dates: start: 2001
  2. BABY ASPIRIN [Concomitant]
     Active Substance: ASPIRIN
     Indication: PRODUCT USED FOR UNKNOWN INDICATION
     Dosage: DAILY
  3. SYNTHROID [Concomitant]
     Active Substance: LEVOTHYROXINE SODIUM
     Indication: PRODUCT USED FOR UNKNOWN INDICATION
     Dosage: 0.1 OR 0.112 MG DAILY, ALTERNATE DOSES EVERY OTHER DAY
  4. ACUPREL [Concomitant]
     Indication: PRODUCT USED FOR UNKNOWN INDICATION
  5. SIMVASTATIN. [Concomitant]
     Active Substance: SIMVASTATIN
     Indication: PRODUCT USED FOR UNKNOWN INDICATION
     Dosage: DAILY

REACTIONS (11)
  - Shoulder operation [Unknown]
  - Sinusitis [Recovered/Resolved]
  - Shoulder operation [Unknown]
  - Nasopharyngitis [Unknown]
  - Malaise [Recovered/Resolved]
  - Sinus congestion [Recovered/Resolved]
  - Pain in extremity [Not Recovered/Not Resolved]
  - Shoulder operation [Unknown]
  - Respiratory tract congestion [Recovered/Resolved]
  - Erythema [Not Recovered/Not Resolved]
  - Shoulder operation [Unknown]

NARRATIVE: CASE EVENT DATE: 2002
